FAERS Safety Report 4606594-5 (Version None)
Quarter: 2005Q2

REPORT INFORMATION
  Report Type: 
  Country: None (occurrence: None)
  Receive Date: 20050223
  Receipt Date: 20040615
  Transmission Date: 20051028
  Serious: Yes (Hospitalization, Disabling, Other)
  Sender: FDA-Public Use
  Company Number: WAES 0406USA01595

PATIENT
  Age: 75 Year
  Sex: Female
  Weight: 80.2867 kg

DRUGS (6)
  1. ZOCOR [Suspect]
     Indication: BLOOD CHOLESTEROL INCREASED
     Dosage: 20 MG/HS/PO
     Route: 048
     Dates: start: 20020901, end: 20040609
  2. ZOCOR [Suspect]
     Indication: DYSLIPIDAEMIA
     Dosage: 20 MG/HS/PO
     Route: 048
     Dates: start: 20020901, end: 20040609
  3. BENICAR [Concomitant]
  4. HYDRODIURIL [Concomitant]
  5. ASPIRIN [Concomitant]
  6. ATENOLOL [Concomitant]

REACTIONS (1)
  - RHABDOMYOLYSIS [None]
